FAERS Safety Report 5466686-8 (Version None)
Quarter: 2007Q3

REPORT INFORMATION
  Report Type: 
  Country: None (occurrence: None)
  Receive Date: 20070924
  Receipt Date: 20070924
  Transmission Date: 20080115
  Serious: Yes (Other)
  Sender: FDA-Public Use
  Company Number: None

PATIENT
  Sex: Male

DRUGS (5)
  1. SERTRALINE [Suspect]
     Dosage: 300MG DAILY ORAL
     Route: 048
     Dates: start: 20070701, end: 20070101
  2. SEROQUEL [Concomitant]
  3. PROVIGIL [Concomitant]
  4. TOPAMAX [Concomitant]
  5. ROXYCODONE [Concomitant]

REACTIONS (2)
  - DEPRESSION [None]
  - THERAPEUTIC RESPONSE UNEXPECTED WITH DRUG SUBSTITUTION [None]
